FAERS Safety Report 7933689-0 (Version None)
Quarter: 2011Q4

REPORT INFORMATION
  Report Type: 
  Country: None (occurrence: None)
  Receive Date: 20111118
  Receipt Date: 20111107
  Transmission Date: 20120403
  Serious: Yes (Other)
  Sender: FDA-Public Use
  Company Number: GER/UKI/11/0021831

PATIENT
  Sex: Male

DRUGS (1)
  1. OLANZAPINE [Suspect]
     Indication: PRODUCT USED FOR UNKNOWN INDICATION
     Dosage: 15 MG

REACTIONS (10)
  - AKATHISIA [None]
  - HALLUCINATION, AUDITORY [None]
  - AGGRESSION [None]
  - TREMOR [None]
  - HEADACHE [None]
  - RESTLESSNESS [None]
  - INSOMNIA [None]
  - ANXIETY [None]
  - FATIGUE [None]
  - INFLUENZA [None]
